FAERS Safety Report 4293104-8 (Version None)
Quarter: 2004Q1

REPORT INFORMATION
  Report Type: 
  Country: None (occurrence: None)
  Receive Date: 20040212
  Receipt Date: 20030107
  Transmission Date: 20041129
  Serious: No
  Sender: FDA-Public Use
  Company Number: US-GLAXOSMITHKLINE-A0391476A

PATIENT
  Age: 24 Year
  Sex: Female
  Weight: 89.5 kg

DRUGS (1)
  1. PAXIL [Suspect]
     Dosage: 20MG PER DAY
     Route: 048

REACTIONS (2)
  - EMOTIONAL DISTRESS [None]
  - SENSORY DISTURBANCE [None]
